FAERS Safety Report 11643951 (Version 2)
Quarter: 2015Q4

REPORT INFORMATION
  Report Type: Spontaneous
  Country: CH (occurrence: CH)
  Receive Date: 20151020
  Receipt Date: 20151030
  Transmission Date: 20160304
  Serious: Yes (Other)
  Sender: FDA-Public Use
  Company Number: CH-TEVA-601096ISR

PATIENT
  Age: 82 Year
  Sex: Male

DRUGS (3)
  1. FLUORURACIL [Suspect]
     Active Substance: FLUOROURACIL
     Route: 065
  2. OXALIPLATIN. [Concomitant]
     Active Substance: OXALIPLATIN
     Route: 065
  3. LEUCOVORIN. [Suspect]
     Active Substance: LEUCOVORIN
     Route: 065

REACTIONS (1)
  - Metastases to lung [Unknown]
